FAERS Safety Report 5191664-6 (Version None)
Quarter: 2006Q4

REPORT INFORMATION
  Report Type: 
  Country: None (occurrence: None)
  Receive Date: 20061219
  Receipt Date: 20061206
  Transmission Date: 20070319
  Serious: Yes (Death)
  Sender: FDA-Public Use
  Company Number: 2006150872

PATIENT

DRUGS (3)
  1. ZYVOX [Suspect]
     Indication: DEPRESSION
     Dosage: 1200 MG (600 MG, 2 IN 1 D)
  2. ZOLOFT [Suspect]
     Indication: DEPRESSION
  3. DRUG UNSPECIFIED [Concomitant]

REACTIONS (2)
  - AGITATION [None]
  - CONFUSIONAL STATE [None]
